FAERS Safety Report 6213964-0 (Version None)
Quarter: 2009Q2

REPORT INFORMATION
  Report Type: 
  Country: None (occurrence: None)
  Receive Date: 20090604
  Receipt Date: 20090526
  Transmission Date: 20091009
  Serious: Yes (Hospitalization)
  Sender: FDA-Public Use
  Company Number: BE-JNJFOC-20080302384

PATIENT
  Sex: Male
  Weight: 69 kg

DRUGS (5)
  1. REMICADE [Suspect]
     Route: 042
  2. REMICADE [Suspect]
     Indication: CROHN'S DISEASE
     Route: 042
  3. HUMIRA [Suspect]
     Indication: CROHN'S DISEASE
  4. LEDERTREXATE [Suspect]
     Indication: CROHN'S DISEASE
  5. FOLAVIT [Concomitant]
     Indication: CROHN'S DISEASE

REACTIONS (1)
  - HERPES ZOSTER [None]
